FAERS Safety Report 22598083 (Version 1)
Quarter: 2023Q2

REPORT INFORMATION
  Report Type: Spontaneous
  Country: US (occurrence: None)
  Receive Date: 20230614
  Receipt Date: 20230614
  Transmission Date: 20230721
  Serious: No
  Sender: FDA-Public Use
  Company Number: US-MDD US Operations-MDD202207-002040

PATIENT
  Age: 75 Year
  Sex: Male

DRUGS (4)
  1. APOKYN [Suspect]
     Active Substance: APOMORPHINE HYDROCHLORIDE
     Indication: Parkinson^s disease
     Dates: start: 20220701
  2. APOKYN [Suspect]
     Active Substance: APOMORPHINE HYDROCHLORIDE
     Dates: start: 202207
  3. APOKYN [Suspect]
     Active Substance: APOMORPHINE HYDROCHLORIDE
     Dates: start: 202207
  4. APOKYN [Suspect]
     Active Substance: APOMORPHINE HYDROCHLORIDE

REACTIONS (10)
  - Flushing [Unknown]
  - Gait disturbance [Recovering/Resolving]
  - Rhinorrhoea [Not Recovered/Not Resolved]
  - Retching [Recovered/Resolved]
  - Condition aggravated [Not Recovered/Not Resolved]
  - Hyperhidrosis [Unknown]
  - Asthenia [Not Recovered/Not Resolved]
  - Dyspnoea [Recovered/Resolved]
  - Hypotension [Unknown]
  - Nausea [Unknown]

NARRATIVE: CASE EVENT DATE: 20220701
